FAERS Safety Report 8369557-2 (Version None)
Quarter: 2012Q2

REPORT INFORMATION
  Report Type: 
  Country: None (occurrence: None)
  Receive Date: 20120518
  Receipt Date: 20110815
  Transmission Date: 20120825
  Serious: No
  Sender: FDA-Public Use
  Company Number: US-TEVA-2011004284

PATIENT
  Sex: Female
  Weight: 111.23 kg

DRUGS (5)
  1. CELEBREX [Concomitant]
     Dates: start: 20110201
  2. NUVIGIL [Suspect]
     Indication: CIRCADIAN RHYTHM SLEEP DISORDER
     Route: 048
     Dates: start: 20110812
  3. MULTI-VITAMIN [Concomitant]
  4. CALCIUM [Concomitant]
  5. NEXIUM [Concomitant]
     Dates: start: 20110301

REACTIONS (1)
  - DRUG INEFFECTIVE [None]
